FAERS Safety Report 7334097-6 (Version None)
Quarter: 2011Q1

REPORT INFORMATION
  Report Type: 
  Country: None (occurrence: None)
  Receive Date: 20110302
  Receipt Date: 20110302
  Transmission Date: 20110831
  Serious: No
  Sender: FDA-Public Use
  Company Number: None

PATIENT
  Age: 63 Year
  Sex: Female
  Weight: 56.6996 kg

DRUGS (1)
  1. TOPAMAX [Suspect]
     Indication: HEADACHE
     Dosage: 25MG 3 A.M.  3 P.M.
     Dates: start: 20100601, end: 20101001

REACTIONS (4)
  - FEELING COLD [None]
  - VITREOUS FLOATERS [None]
  - DISTURBANCE IN ATTENTION [None]
  - AGEUSIA [None]
